FAERS Safety Report 18651521 (Version 2)
Quarter: 2021Q1

REPORT INFORMATION
  Report Type: Spontaneous
  Country: DE (occurrence: DE)
  Receive Date: 20201222
  Receipt Date: 20210129
  Transmission Date: 20210419
  Serious: Yes (Other)
  Sender: FDA-Public Use
  Company Number: NVSC2020DE332887

PATIENT
  Sex: Male

DRUGS (8)
  1. VALSARTAN ? 1 A PHARMA PLUS 160 MG/12,5 MG FILMTABLETTEN [Suspect]
     Active Substance: HYDROCHLOROTHIAZIDE\VALSARTAN
     Indication: HYPERTENSION
     Dosage: UNK
     Route: 065
     Dates: start: 201803, end: 201807
  2. PREDNISOLON [Concomitant]
     Active Substance: PREDNISOLONE
     Indication: PRODUCT USED FOR UNKNOWN INDICATION
     Dosage: UNK
     Route: 065
     Dates: start: 2013, end: 2018
  3. LYRICA [Concomitant]
     Active Substance: PREGABALIN
     Indication: PRODUCT USED FOR UNKNOWN INDICATION
     Dosage: UNK
     Route: 065
     Dates: start: 2013, end: 2018
  4. ARCOXIA [Concomitant]
     Active Substance: ETORICOXIB
     Indication: PRODUCT USED FOR UNKNOWN INDICATION
     Dosage: UNK
     Route: 065
     Dates: start: 2013, end: 2018
  5. VALSARTAN. [Suspect]
     Active Substance: VALSARTAN
     Indication: HYPERTENSION
     Dosage: 320 MG
     Route: 065
     Dates: start: 200912, end: 2018
  6. VALSARTAN. [Suspect]
     Active Substance: VALSARTAN
     Dosage: 160 MG, QD
     Route: 065
     Dates: start: 2018
  7. VALSARTAN ? 1 A PHARMA PLUS 320 MG/25 MG FILMTABLETTEN [Suspect]
     Active Substance: HYDROCHLOROTHIAZIDE\VALSARTAN
     Indication: HYPERTENSION
     Dosage: UNK
     Route: 065
     Dates: start: 201301, end: 201412
  8. PANTOPRAZOLE [Concomitant]
     Active Substance: PANTOPRAZOLE
     Indication: PRODUCT USED FOR UNKNOWN INDICATION
     Dosage: UNK
     Route: 065
     Dates: start: 2013, end: 2018

REACTIONS (16)
  - Breast pain [Unknown]
  - Breast mass [Unknown]
  - Sensitisation [Unknown]
  - Fibrosis [Unknown]
  - Product contamination chemical [Unknown]
  - Emotional distress [Unknown]
  - Soft tissue neoplasm [Unknown]
  - Breast calcifications [Unknown]
  - Fear of disease [Unknown]
  - Hyperkeratosis [Unknown]
  - Lymphocytic infiltration [Unknown]
  - Breast discomfort [Unknown]
  - Depressed mood [Unknown]
  - Quality of life decreased [Unknown]
  - Acanthosis [Unknown]
  - Skin lesion [Unknown]

NARRATIVE: CASE EVENT DATE: 2013
